FAERS Safety Report 6106942-3 (Version None)
Quarter: 2009Q1

REPORT INFORMATION
  Report Type: 
  Country: None (occurrence: None)
  Receive Date: 20090305
  Receipt Date: 20090305
  Transmission Date: 20090719
  Serious: No
  Sender: FDA-Public Use
  Company Number: None

PATIENT
  Sex: Female
  Weight: 72.5755 kg

DRUGS (1)
  1. CLIMARA [Suspect]
     Indication: HORMONE REPLACEMENT THERAPY
     Dosage: 0.05MG CONTINUOUS USE SKIN
     Dates: start: 20080709

REACTIONS (2)
  - ABDOMINAL DISTENSION [None]
  - DERMATITIS CONTACT [None]
